FAERS Safety Report 5042593-X (Version None)
Quarter: 2006Q2

REPORT INFORMATION
  Report Type: 
  Country: None (occurrence: None)
  Receive Date: 20060627
  Receipt Date: 20060614
  Transmission Date: 20061013
  Serious: Yes (Life-Threatening, Hospitalization, Disabling)
  Sender: FDA-Public Use
  Company Number: 2006075881

PATIENT
  Age: 38 Year
  Sex: Female

DRUGS (3)
  1. EPIRUBICIN [Suspect]
     Indication: BREAST CANCER
     Dosage: (120 MG), INTRAVENOUS
     Route: 042
     Dates: start: 20060113, end: 20060502
  2. CYCLOPHOSPHAMIDE [Suspect]
     Indication: BREAST CANCER
     Dosage: (1000 MG), INTRAVENOUS
     Route: 042
     Dates: start: 20060113, end: 20060502
  3. FLUOROURACIL [Suspect]
     Indication: BREAST CANCER
     Dosage: (1000 MG), INTRAVENOUS
     Route: 042
     Dates: start: 20060113, end: 20060502

REACTIONS (14)
  - DEEP VEIN THROMBOSIS [None]
  - DEPRESSION [None]
  - DIALYSIS [None]
  - DIARRHOEA [None]
  - DISSEMINATED INTRAVASCULAR COAGULATION [None]
  - FASCIITIS [None]
  - GENERAL PHYSICAL HEALTH DETERIORATION [None]
  - INSOMNIA [None]
  - MULTI-ORGAN DISORDER [None]
  - POST PROCEDURAL HAEMORRHAGE [None]
  - RENAL FAILURE [None]
  - SEPTIC SHOCK [None]
  - STREPTOCOCCAL INFECTION [None]
  - VOMITING [None]
